FAERS Safety Report 8140487-4 (Version None)
Quarter: 2012Q1

REPORT INFORMATION
  Report Type: 
  Country: None (occurrence: None)
  Receive Date: 20120216
  Receipt Date: 20120213
  Transmission Date: 20120608
  Serious: Yes (Hospitalization)
  Sender: FDA-Public Use
  Company Number: US-PFIZER INC-2012038861

PATIENT
  Sex: Male
  Weight: 81.633 kg

DRUGS (3)
  1. ZANAFLEX [Concomitant]
     Indication: MUSCLE DISORDER
     Dosage: UNK
  2. LYRICA [Suspect]
     Indication: JOINT DISLOCATION
     Dosage: 50 MG, 3X/DAY
     Route: 048
     Dates: start: 20100101
  3. LYRICA [Suspect]
     Dosage: UNK
     Route: 048

REACTIONS (1)
  - GRAND MAL CONVULSION [None]
